FAERS Safety Report 10210897 (Version 1)
Quarter: 2014Q2

REPORT INFORMATION
  Report Type: Spontaneous
  Country: US (occurrence: None)
  Receive Date: 20140528
  Receipt Date: 20140528
  Transmission Date: 20141212
  Serious: Yes (Other)
  Sender: FDA-Public Use
  Company Number: 2014AP00368

PATIENT
  Age: 50 Year
  Sex: Female

DRUGS (8)
  1. SERTRALINE HYDROCHLORIDE [Suspect]
     Indication: POST-TRAUMATIC STRESS DISORDER
  2. CITALOPRAM [Suspect]
     Indication: POST-TRAUMATIC STRESS DISORDER
  3. PAROXETINE HYDROCHLORIDE [Suspect]
     Indication: POST-TRAUMATIC STRESS DISORDER
  4. MIRTAZAPINE [Suspect]
     Indication: TACHYCARDIA
  5. MIRTAZAPINE [Suspect]
     Indication: INSOMNIA
  6. LORAZEPAM [Suspect]
     Indication: POST-TRAUMATIC STRESS DISORDER
  7. FLUOXETINE [Suspect]
     Indication: PRODUCT USED FOR UNKNOWN INDICATION
  8. BUPROPION (BUPROPION) [Concomitant]

REACTIONS (15)
  - Suicidal ideation [None]
  - Homicidal ideation [None]
  - Intentional product misuse [None]
  - Night sweats [None]
  - Depressive symptom [None]
  - Central obesity [None]
  - Somnolence [None]
  - Motor dysfunction [None]
  - Loss of libido [None]
  - Weight increased [None]
  - Constipation [None]
  - Fatigue [None]
  - Agitation [None]
  - Insomnia [None]
  - Toxicity to various agents [None]
